FAERS Safety Report 8504859-8 (Version None)
Quarter: 2012Q2

REPORT INFORMATION
  Report Type: 
  Country: None (occurrence: None)
  Receive Date: 20120405
  Receipt Date: 20101224
  Transmission Date: 20120825
  Serious: Yes (Other)
  Sender: FDA-Public Use
  Company Number: PHHY2010US55231

PATIENT
  Age: 75 Year
  Sex: Female
  Weight: 140 kg

DRUGS (4)
  1. ASCORBIC CID (ASCORBIC ACID) [Concomitant]
  2. GABAPENTIN [Concomitant]
  3. RECLAST [Suspect]
     Indication: OSTEOPOROSIS
     Dosage: 5G, PER YEAR, INTRAVENOUS
     Route: 042
     Dates: start: 20100709
  4. LEVOTHYROXINE SODIUM [Concomitant]

REACTIONS (1)
  - BONE PAIN [None]
